FAERS Safety Report 14313887 (Version 10)
Quarter: 2018Q2

REPORT INFORMATION
  Report Type: Spontaneous
  Country: CA (occurrence: CA)
  Receive Date: 20171221
  Receipt Date: 20180523
  Transmission Date: 20180711
  Serious: Yes (Other)
  Sender: FDA-Public Use
  Company Number: CA-CELLTRION INC.-2017CA010628

PATIENT

DRUGS (11)
  1. INFLECTRA [Suspect]
     Active Substance: INFLIXIMAB-DYYB
     Dosage: 540 MG, CYCLIC (EVERY 6 WEEKS)
     Route: 042
     Dates: start: 20170801
  2. INFLECTRA [Suspect]
     Active Substance: INFLIXIMAB-DYYB
     Dosage: 540 MG, CYCLIC (EVERY 6 WEEKS)
     Route: 042
     Dates: start: 20180411, end: 20180411
  3. INFLECTRA [Suspect]
     Active Substance: INFLIXIMAB-DYYB
     Dosage: 275 MG, CYCLIC
     Route: 065
     Dates: start: 20171212, end: 20171212
  4. INFLECTRA [Suspect]
     Active Substance: INFLIXIMAB-DYYB
     Dosage: 540 MG, CYCLIC (EVERY 6 WEEKS)
     Route: 042
     Dates: start: 20180111, end: 20180111
  5. AMITRIPTYLINE [Concomitant]
     Active Substance: AMITRIPTYLINE
     Indication: INSOMNIA
     Dosage: 10 MG, DAILY
     Route: 065
     Dates: start: 20170712
  6. INFLECTRA [Suspect]
     Active Substance: INFLIXIMAB-DYYB
     Indication: CROHN^S DISEASE
     Dosage: 275 MG, CYCLIC (EVERY 0, 2, 6 WEEKS, THEN EVERY 8 WEEKS)
     Route: 042
     Dates: start: 20170801
  7. INFLECTRA [Suspect]
     Active Substance: INFLIXIMAB-DYYB
     Dosage: 275 MG, CYCLIC(EVERY 0, 2 6 WEEKS, THEN EVERY 8 WEEKS,
     Route: 042
     Dates: start: 20171106, end: 20171106
  8. COVERSYL                           /00790702/ [Concomitant]
     Active Substance: PERINDOPRIL
     Indication: BLOOD PRESSURE MEASUREMENT
     Dosage: 8 MG, DAILY
     Route: 065
     Dates: start: 2013
  9. CIPROFLOXACIN. [Concomitant]
     Active Substance: CIPROFLOXACIN
     Dosage: UNK
     Route: 065
     Dates: start: 20171207
  10. INFLECTRA [Suspect]
     Active Substance: INFLIXIMAB-DYYB
     Dosage: 275 MG, CYCLIC
     Route: 065
     Dates: end: 20171212
  11. INFLECTRA [Suspect]
     Active Substance: INFLIXIMAB-DYYB
     Dosage: 540 MG, CYCLIC (EVERY 6 WEEKS)
     Route: 042
     Dates: start: 20180226, end: 20180226

REACTIONS (12)
  - Drug level below therapeutic [Not Recovered/Not Resolved]
  - Rash [Recovering/Resolving]
  - Product use issue [Unknown]
  - Arthralgia [Recovering/Resolving]
  - Pyrexia [Recovered/Resolved]
  - Drug specific antibody [Not Recovered/Not Resolved]
  - Anal fissure [Recovering/Resolving]
  - Drug effect incomplete [Unknown]
  - Nasopharyngitis [Unknown]
  - Condition aggravated [Unknown]
  - Full blood count decreased [Recovering/Resolving]
  - Therapeutic response shortened [Not Recovered/Not Resolved]

NARRATIVE: CASE EVENT DATE: 20170901
